FAERS Safety Report 16007850 (Version 3)
Quarter: 2020Q1

REPORT INFORMATION
  Report Type: Report from Study
  Country: FR (occurrence: FR)
  Receive Date: 20190226
  Receipt Date: 20200224
  Transmission Date: 20200409
  Serious: Yes (Hospitalization, Other)
  Sender: FDA-Public Use
  Company Number: FR-PFIZER INC-2019076859

PATIENT
  Sex: Male
  Weight: 64 kg

DRUGS (2)
  1. SUNITINIB MALATE. [Suspect]
     Active Substance: SUNITINIB MALATE
     Dosage: UNK
     Route: 065
  2. VOTRIENT [Suspect]
     Active Substance: PAZOPANIB HYDROCHLORIDE
     Indication: RENAL CANCER METASTATIC
     Dosage: 800 MG, 1X/DAY
     Route: 048
     Dates: start: 20180801, end: 20180928

REACTIONS (15)
  - Hyperbilirubinaemia [Recovered/Resolved]
  - Vertigo [Unknown]
  - Gastrointestinal toxicity [Recovered/Resolved]
  - Gastrointestinal toxicity [Unknown]
  - Palmar-plantar erythrodysaesthesia syndrome [Recovered/Resolved]
  - Musculoskeletal stiffness [Unknown]
  - Palmar-plantar erythrodysaesthesia syndrome [Unknown]
  - Jaundice [Unknown]
  - Nausea [Unknown]
  - Hepatic function abnormal [Unknown]
  - General physical health deterioration [Unknown]
  - Arthralgia [Unknown]
  - Jaundice [Recovered/Resolved]
  - Drug intolerance [Recovered/Resolved]
  - Arthralgia [Recovered/Resolved]

NARRATIVE: CASE EVENT DATE: 20180809
